FAERS Safety Report 5983121-1 (Version None)
Quarter: 2008Q4

REPORT INFORMATION
  Report Type: 
  Country: None (occurrence: None)
  Receive Date: 20081208
  Receipt Date: 20081122
  Transmission Date: 20090506
  Serious: Yes (Other)
  Sender: FDA-Public Use
  Company Number: AT-ABBOTT-08P-009-0487364-00

PATIENT
  Sex: Male
  Weight: 108 kg

DRUGS (1)
  1. LIPCOR [Suspect]
     Indication: HYPERLIPIDAEMIA
     Route: 048
     Dates: start: 20080820, end: 20080929

REACTIONS (1)
  - GAMMA-GLUTAMYLTRANSFERASE INCREASED [None]
